FAERS Safety Report 14751045 (Version 1)
Quarter: 2018Q2

REPORT INFORMATION
  Report Type: Spontaneous
  Country: US (occurrence: US)
  Receive Date: 20180406
  Receipt Date: 20180406
  Transmission Date: 20180711
  Serious: No
  Sender: FDA-Public Use
  Company Number: None

PATIENT
  Age: 53 Year
  Sex: Female
  Weight: 69.75 kg

DRUGS (3)
  1. METHYLPREDNISOLONE TABLETS [Suspect]
     Active Substance: METHYLPREDNISOLONE
     Indication: SEASONAL ALLERGY
     Dosage: ?          QUANTITY:21 TABLET(S);?
     Route: 048
     Dates: start: 20180323, end: 20180328
  2. LIPITOR [Concomitant]
     Active Substance: ATORVASTATIN CALCIUM
  3. HCTZ 254MG [Concomitant]

REACTIONS (6)
  - Insomnia [None]
  - Hypoaesthesia [None]
  - Anxiety [None]
  - Paraesthesia [None]
  - Disturbance in attention [None]
  - Feeling hot [None]

NARRATIVE: CASE EVENT DATE: 20180323
